FAERS Safety Report 15058188 (Version 1)
Quarter: 2018Q3

REPORT INFORMATION
  Report Type: Spontaneous
  Country: US (occurrence: US)
  Receive Date: 20180625
  Receipt Date: 20180625
  Transmission Date: 20181010
  Serious: Yes (Other)
  Sender: FDA-Public Use
  Company Number: US-COLGATE PALMOLIVE COMPANY-20180601305

PATIENT

DRUGS (1)
  1. COLGATE TOTAL WHITENING GEL [Suspect]
     Active Substance: SODIUM FLUORIDE\TRICLOSAN
     Indication: DENTAL DISORDER PROPHYLAXIS
     Dosage: FILLED BRISTLES ? FULL WITH TOOTHPASTE. USED 2?3 TIMES A DAY
     Route: 048
     Dates: end: 2018

REACTIONS (2)
  - Abdominal discomfort [Unknown]
  - Diarrhoea [Recovered/Resolved]

NARRATIVE: CASE EVENT DATE: 201710
